FAERS Safety Report 9000591 (Version 1)
Quarter: 2013Q1

REPORT INFORMATION
  Report Type: Spontaneous
  Country: US (occurrence: US)
  Receive Date: 20130107
  Receipt Date: 20130107
  Transmission Date: 20140127
  Serious: No
  Sender: FDA-Public Use
  Company Number: US-PFIZER INC-2013005632

PATIENT
  Age: 50 Year
  Sex: Female
  Weight: 67.12 kg

DRUGS (2)
  1. CHANTIX [Suspect]
     Indication: SMOKING CESSATION THERAPY
     Dosage: 0.5 MG, UNK
     Dates: start: 201212
  2. CHANTIX [Suspect]
     Dosage: 1 MG, 2X/DAY

REACTIONS (4)
  - Gastric disorder [Unknown]
  - Malaise [Unknown]
  - Chest pain [Unknown]
  - Nausea [Unknown]
